FAERS Safety Report 4468367-6 (Version None)
Quarter: 2004Q4

REPORT INFORMATION
  Report Type: 
  Country: None (occurrence: None)
  Receive Date: 20041007
  Receipt Date: 20040819
  Transmission Date: 20050328
  Serious: Yes (Hospitalization)
  Sender: FDA-Public Use
  Company Number: US-GLAXOSMITHKLINE-A0523734A

PATIENT
  Age: 17 Year
  Sex: Female

DRUGS (5)
  1. PAXIL CR [Suspect]
     Route: 048
     Dates: start: 20040107, end: 20040603
  2. AMBIEN [Suspect]
  3. CLARITIN-D [Concomitant]
  4. RHINOCORT [Concomitant]
  5. BIRTH CONTROL [Concomitant]

REACTIONS (5)
  - AGGRESSION [None]
  - INTENTIONAL OVERDOSE [None]
  - NEGLECT OF PERSONAL APPEARANCE [None]
  - SELF MUTILATION [None]
  - SUICIDE ATTEMPT [None]
